FAERS Safety Report 15651309 (Version 1)
Quarter: 2018Q4

REPORT INFORMATION
  Report Type: Spontaneous
  Country: NO (occurrence: NO)
  Receive Date: 20181123
  Receipt Date: 20181123
  Transmission Date: 20190205
  Serious: Yes (Congenital Anomaly)
  Sender: FDA-Public Use
  Company Number: NO-GLAXOSMITHKLINE-NO2018211323

PATIENT
  Sex: Female

DRUGS (2)
  1. LAMICTAL [Suspect]
     Active Substance: LAMOTRIGINE
     Indication: EPILEPSY
     Dosage: DOSAGE AT THE END OF THE PREGNANCY.
     Route: 064
     Dates: end: 20140412
  2. LAMICTAL [Suspect]
     Active Substance: LAMOTRIGINE
     Dosage: DOSAGE AT THE BEGENNING OF THE PREGNANCY
     Route: 064
     Dates: start: 201306

REACTIONS (2)
  - Foetal exposure during pregnancy [Not Recovered/Not Resolved]
  - Spina bifida occulta [Not Recovered/Not Resolved]

NARRATIVE: CASE EVENT DATE: 201306
